FAERS Safety Report 9160562 (Version 1)
Quarter: 2013Q1

REPORT INFORMATION
  Report Type: Spontaneous
  Country: US (occurrence: US)
  Receive Date: 20130313
  Receipt Date: 20130313
  Transmission Date: 20140127
  Serious: No
  Sender: FDA-Public Use
  Company Number: US-ABBOTT-12P-163-0990633-00

PATIENT
  Sex: Male
  Weight: 99.88 kg

DRUGS (3)
  1. DEPAKOTE [Suspect]
     Indication: OBSESSIVE-COMPULSIVE DISORDER
     Dates: start: 201206, end: 201208
  2. INDERAL [Concomitant]
     Indication: PRODUCT USED FOR UNKNOWN INDICATION
  3. SEROQUEL [Concomitant]
     Indication: PRODUCT USED FOR UNKNOWN INDICATION

REACTIONS (9)
  - Off label use [Unknown]
  - Condition aggravated [Not Recovered/Not Resolved]
  - Obsessive thoughts [Not Recovered/Not Resolved]
  - Nervousness [Not Recovered/Not Resolved]
  - Memory impairment [Not Recovered/Not Resolved]
  - Somnolence [Not Recovered/Not Resolved]
  - Malaise [Not Recovered/Not Resolved]
  - Decreased interest [Not Recovered/Not Resolved]
  - Mental status changes [Not Recovered/Not Resolved]
